FAERS Safety Report 7784556-7 (Version None)
Quarter: 2011Q3

REPORT INFORMATION
  Report Type: 
  Country: None (occurrence: None)
  Receive Date: 20110928
  Receipt Date: 20110922
  Transmission Date: 20111222
  Serious: Yes (Other)
  Sender: FDA-Public Use
  Company Number: MX-SANOFI-AVENTIS-2011SA062358

PATIENT
  Age: 78 Year
  Sex: Female
  Weight: 72 kg

DRUGS (6)
  1. ENALAPRIL MALEATE AND HYDROCHLOROTHIAZIDE [Concomitant]
     Indication: HYPERTENSION
     Dosage: 20MG +12.5 MG TABLET
     Route: 048
  2. DIOVAN [Concomitant]
     Indication: HYPERTENSION
     Route: 048
  3. EPOGEN [Concomitant]
     Dosage: 1/2 AN AMPULE IN 15 DAYS
  4. LANTUS [Suspect]
     Indication: TYPE 2 DIABETES MELLITUS
     Dosage: 15 IU IN THE DAY AND 5 IU AT NIGHT.
     Route: 058
  5. EPOGEN [Concomitant]
     Dosage: 1/2 AN AMPULE IN 15 DAYS
  6. AMLODIPINE [Concomitant]
     Indication: HYPERTENSION
     Route: 048

REACTIONS (2)
  - ANAEMIA [None]
  - RENAL FAILURE [None]
